FAERS Safety Report 18932407 (Version 1)
Quarter: 2021Q1

REPORT INFORMATION
  Report Type: Other
  Country: FR (occurrence: FR)
  Receive Date: 20210224
  Receipt Date: 20210224
  Transmission Date: 20210420
  Serious: Yes (Other)
  Sender: FDA-Public Use
  Company Number: FR-ROCHE-2770734

PATIENT
  Age: 76 Year
  Sex: Male
  Weight: 92 kg

DRUGS (8)
  1. METFORMINE [Concomitant]
     Active Substance: METFORMIN HYDROCHLORIDE
  2. LANTUS [Concomitant]
     Active Substance: INSULIN GLARGINE
  3. ATEZOLIZUMAB. [Suspect]
     Active Substance: ATEZOLIZUMAB
     Indication: HEPATOCELLULAR CARCINOMA
     Dosage: ON 18/JAN/2021, HE RECEIVED THE MOST RECENT DOSE OF ATEZOLIZUMAB.
     Route: 042
  4. INEXIUM [Concomitant]
     Active Substance: ESOMEPRAZOLE
  5. KARDEGIC [Concomitant]
     Active Substance: ASPIRIN DL-LYSINE
  6. COTAREG [Concomitant]
     Active Substance: HYDROCHLOROTHIAZIDE\VALSARTAN
  7. VICTOZA [Concomitant]
     Active Substance: LIRAGLUTIDE
  8. BEVACIZUMAB. [Suspect]
     Active Substance: BEVACIZUMAB
     Indication: HEPATOCELLULAR CARCINOMA
     Dosage: ON 18/JAN/2021, HE RECEIVED THE MOST RECENT DOSE OF BEVACIZUMAB.
     Route: 065

REACTIONS (2)
  - Tumour haemorrhage [Unknown]
  - Tumour rupture [Unknown]
